FAERS Safety Report 14243489 (Version 1)
Quarter: 2017Q4

REPORT INFORMATION
  Report Type: Spontaneous
  Country: US (occurrence: None)
  Receive Date: 20171130
  Receipt Date: 20171130
  Transmission Date: 20180321
  Serious: No
  Sender: FDA-Public Use
  Company Number: None

PATIENT
  Age: 74 Year
  Sex: Female

DRUGS (1)
  1. JAKAFI [Suspect]
     Active Substance: RUXOLITINIB
     Indication: MYELOPROLIFERATIVE NEOPLASM
     Route: 048
     Dates: start: 20170630

REACTIONS (3)
  - Weight increased [None]
  - Urinary tract infection [None]
  - Herpes zoster [None]

NARRATIVE: CASE EVENT DATE: 20171129
